FAERS Safety Report 16260352 (Version 1)
Quarter: 2019Q2

REPORT INFORMATION
  Report Type: Spontaneous
  Country: US (occurrence: US)
  Receive Date: 20190430
  Receipt Date: 20190430
  Transmission Date: 20190711
  Serious: Yes (Hospitalization)
  Sender: FDA-Public Use
  Company Number: None

PATIENT
  Sex: Female

DRUGS (15)
  1. FOLIC ACID. [Concomitant]
     Active Substance: FOLIC ACID
  2. PROGRAF [Concomitant]
     Active Substance: TACROLIMUS\TACROLIMUS ANHYDROUS
  3. PREVYMIS [Concomitant]
     Active Substance: LETERMOVIR
  4. TACROLIMUS. [Suspect]
     Active Substance: TACROLIMUS
     Indication: BONE MARROW TRANSPLANT
     Route: 048
     Dates: start: 20190118
  5. BACTRIM [Concomitant]
     Active Substance: SULFAMETHOXAZOLE\TRIMETHOPRIM
  6. NOXAFIL [Concomitant]
     Active Substance: POSACONAZOLE
  7. PROCHLORPER [Concomitant]
  8. VALTREX [Concomitant]
     Active Substance: VALACYCLOVIR HYDROCHLORIDE
  9. RYDAPT [Suspect]
     Active Substance: MIDOSTAURIN
     Indication: ACUTE MYELOID LEUKAEMIA
     Route: 048
     Dates: start: 20181016
  10. ADVAIR HFA [Concomitant]
     Active Substance: FLUTICASONE PROPIONATE\SALMETEROL XINAFOATE
  11. MAGNESIUM [Concomitant]
     Active Substance: MAGNESIUM
  12. QUESTRAN [Concomitant]
     Active Substance: CHOLESTYRAMINE
  13. ZOFRAN [Concomitant]
     Active Substance: ONDANSETRON HYDROCHLORIDE
  14. TRAIMCINOLON [Concomitant]
  15. XARELTO [Concomitant]
     Active Substance: RIVAROXABAN

REACTIONS (5)
  - Product odour abnormal [None]
  - Therapy cessation [None]
  - Bone marrow transplant [None]
  - Nausea [None]
  - Insurance issue [None]
